FAERS Safety Report 16634938 (Version 1)
Quarter: 2019Q3

REPORT INFORMATION
  Report Type: Spontaneous
  Country: US (occurrence: US)
  Receive Date: 20190726
  Receipt Date: 20190726
  Transmission Date: 20191004
  Serious: No
  Sender: FDA-Public Use
  Company Number: US-CURIUM-201900326

PATIENT
  Age: 25 Year
  Sex: Female
  Weight: 50.3 kg

DRUGS (2)
  1. SODIUM PERTECHNETATE TC 99M [Concomitant]
     Active Substance: TECHNETIUM TC-99M SODIUM PERTECHNETATE
     Indication: RADIOISOTOPE SCAN
     Route: 051
     Dates: start: 20190618, end: 20190618
  2. TECHNESCAN MAG3 [Suspect]
     Active Substance: TECHNETIUM TC-99M TIATIDE
     Indication: RADIOISOTOPE SCAN
     Route: 051
     Dates: start: 20190618, end: 20190618

REACTIONS (1)
  - Radioisotope scan abnormal [Recovered/Resolved]

NARRATIVE: CASE EVENT DATE: 20190618
